FAERS Safety Report 13299222 (Version 1)
Quarter: 2017Q1

REPORT INFORMATION
  Report Type: Spontaneous
  Country: US (occurrence: US)
  Receive Date: 20170306
  Receipt Date: 20170306
  Transmission Date: 20170428
  Serious: Yes (Other)
  Sender: FDA-Public Use
  Company Number: US-PFIZER INC-2017094570

PATIENT
  Age: 72 Year
  Sex: Female

DRUGS (17)
  1. AMITIZA [Concomitant]
     Active Substance: LUBIPROSTONE
     Indication: CONSTIPATION
     Dosage: 24 UG, 2X/DAY
  2. MAGNESIUM [Concomitant]
     Active Substance: MAGNESIUM
     Indication: OSTEOPOROSIS
  3. TRIAMTERENE AND HYDROCHLOROTHIAZIDE [Concomitant]
     Active Substance: HYDROCHLOROTHIAZIDE\TRIAMTERENE
     Indication: FLUID RETENTION
     Dosage: 37.5/35MG ONE TIME A DAY[TRIAMTERENE, 37.5MG]/[HCTZ, 25MG]
  4. GABAPENTIN. [Suspect]
     Active Substance: GABAPENTIN
     Indication: PAIN IN EXTREMITY
     Dosage: UNK
  5. GABAPENTIN. [Suspect]
     Active Substance: GABAPENTIN
     Dosage: 600 MG, 3X/DAY(300MG SIX PILLS A DAY AT TWO CAPSULES THREE TIMES A DAY
  6. NEFAZODONE HCL [Concomitant]
     Indication: ANXIETY
     Dosage: 150 MG, 3X/DAY
     Dates: start: 1996
  7. CHLORDIAZEPOXIDE HCL [Concomitant]
     Active Substance: CHLORDIAZEPOXIDE HYDROCHLORIDE
     Indication: ANXIETY
     Dosage: 10 MG, 3X/DAY
     Dates: start: 1996
  8. CALCIUM PLUS D3 [Concomitant]
     Indication: OSTEOPOROSIS
     Dosage: CALCIUM 600MG AD D3 400IU TWICE A DAY
  9. CETIRIZINE HCL [Concomitant]
     Active Substance: CETIRIZINE HYDROCHLORIDE
     Indication: SINUS PAIN
     Dosage: 10 MG, 1X/DAY
  10. RESTASIS [Concomitant]
     Active Substance: CYCLOSPORINE
     Indication: DRY EYE
     Dosage: 0.5% TWO TIMES A DAY MORNING AND BEFORE BED
  11. NABUMETONE. [Concomitant]
     Active Substance: NABUMETONE
     Indication: ARTHRITIS
     Dosage: 750 MG, 2X/DAY
  12. VITAMIN C [Concomitant]
     Active Substance: ASCORBIC ACID
     Indication: SUPPLEMENTATION THERAPY
     Dosage: 500 MG, 1X/DAY
  13. LEVOTHYROXINE. [Concomitant]
     Active Substance: LEVOTHYROXINE
     Indication: THYROID DISORDER
     Dosage: 50 UG, 1X/DAY
  14. OMEPRAZOLE. [Concomitant]
     Active Substance: OMEPRAZOLE
     Indication: GASTROOESOPHAGEAL REFLUX DISEASE
     Dosage: 20 MG, 1X/DAY
  15. FLAXSEED [Concomitant]
     Active Substance: FLAX SEED
     Indication: SUPPLEMENTATION THERAPY
     Dosage: 1400MG ONCE A DAY
  16. MAGNESIUM [Concomitant]
     Active Substance: MAGNESIUM
     Indication: SUPPLEMENTATION THERAPY
     Dosage: 250 MG, 1X/DAY
  17. FLUTICASONE. [Concomitant]
     Active Substance: FLUTICASONE
     Indication: SINUS PAIN
     Dosage: NASAL SPRAY 5% MCG TWO PUFFS ONE TIME A DAY
     Route: 045

REACTIONS (14)
  - Product use issue [Unknown]
  - Fall [Unknown]
  - Limb injury [Unknown]
  - Memory impairment [Not Recovered/Not Resolved]
  - Meniscus injury [Unknown]
  - Limb discomfort [Unknown]
  - Dizziness [Unknown]
  - Weight fluctuation [Unknown]
  - Speech disorder [Not Recovered/Not Resolved]
  - Condition aggravated [Not Recovered/Not Resolved]
  - Fluid retention [Unknown]
  - Somnolence [Unknown]
  - Coordination abnormal [Unknown]
  - Arthritis [Unknown]

NARRATIVE: CASE EVENT DATE: 2002
